FAERS Safety Report 17094334 (Version 1)
Quarter: 2019Q4

REPORT INFORMATION
  Report Type: Spontaneous
  Country: DE (occurrence: DE)
  Receive Date: 20191129
  Receipt Date: 20191129
  Transmission Date: 20200122
  Serious: Yes (Hospitalization)
  Sender: FDA-Public Use
  Company Number: PHHY2015DE178109

PATIENT
  Age: 81 Year
  Sex: Female
  Weight: 59 kg

DRUGS (9)
  1. 5-FU [Suspect]
     Active Substance: FLUOROURACIL
     Indication: COLORECTAL CANCER METASTATIC
     Dosage: 4030 MG, QD
     Route: 042
     Dates: start: 20140109, end: 20140109
  2. 5-FU [Suspect]
     Active Substance: FLUOROURACIL
     Indication: COLORECTAL CANCER
  3. FOLINIC ACID [Suspect]
     Active Substance: LEUCOVORIN
     Indication: COLORECTAL CANCER METASTATIC
     Dosage: 775 MG, QD
     Route: 042
     Dates: start: 20140109, end: 20140109
  4. FOLINIC ACID [Suspect]
     Active Substance: LEUCOVORIN
     Indication: COLORECTAL CANCER
  5. AVASTIN [Suspect]
     Active Substance: BEVACIZUMAB
     Dosage: 610 MG, Q2W (LAST DOSE PRIOR TO SAE: 04/DEC/2013 (ILEUS))
     Route: 042
  6. AVASTIN [Suspect]
     Active Substance: BEVACIZUMAB
     Dosage: 590 MG, QD
     Route: 042
     Dates: start: 20140109
  7. ZOFRAN [Concomitant]
     Active Substance: ONDANSETRON HYDROCHLORIDE
     Indication: NAUSEA
     Dosage: 8 MG, UNK
     Route: 042
  8. AVASTIN [Suspect]
     Active Substance: BEVACIZUMAB
     Indication: COLORECTAL CANCER
     Dosage: LAST DOSE PRIOR TO SAE: 04/DEC/2013 (ILEUS)
     Route: 042
     Dates: start: 20131011, end: 20131011
  9. XELODA [Suspect]
     Active Substance: CAPECITABINE
     Indication: COLORECTAL CANCER
     Dosage: 3000 MG, Q2W
     Route: 048
     Dates: start: 20131011, end: 20131209

REACTIONS (3)
  - Gastrointestinal disorder [Recovered/Resolved]
  - Dizziness [Not Recovered/Not Resolved]
  - Ileus [Recovered/Resolved]

NARRATIVE: CASE EVENT DATE: 20131209
